FAERS Safety Report 7779153-3 (Version None)
Quarter: 2011Q3

REPORT INFORMATION
  Report Type: 
  Country: None (occurrence: None)
  Receive Date: 20110926
  Receipt Date: 20110919
  Transmission Date: 20111222
  Serious: Yes (Other)
  Sender: FDA-Public Use
  Company Number: PHEH2007US09509

PATIENT
  Sex: Female
  Weight: 41.27 kg

DRUGS (30)
  1. COZAAR [Concomitant]
     Dosage: 50 MG, UNK
  2. DEMEROL [Concomitant]
  3. CYCLOPHOSPHAMIDE [Concomitant]
  4. FERROUS SULFATE TAB [Concomitant]
     Dosage: 325 MG, 1-2 TIMES DAILY
  5. FLEXERIL [Concomitant]
     Dosage: 10 MG, PRN
  6. EXCEDRIN (MIGRAINE) [Concomitant]
  7. EPOGEN [Concomitant]
     Route: 058
  8. FLU ^LEDERLE^ [Concomitant]
     Dosage: 0.5 ML, UNK
     Route: 030
  9. DURAGESIC-100 [Concomitant]
     Dosage: 50 UG, Q72H
  10. PROVENTIL [Concomitant]
     Indication: DYSPNOEA
  11. ZANAFLEX [Concomitant]
     Dosage: 2 - 4 MG, PRN
  12. TYLENOL-500 [Concomitant]
  13. FOSAMAX [Suspect]
     Indication: OSTEOPENIA
     Dosage: 10 MG, QD
     Dates: start: 19960101, end: 19990101
  14. BENADRYL [Concomitant]
  15. VERSED [Concomitant]
     Route: 042
  16. ZOMETA [Suspect]
  17. LEVOXYL [Concomitant]
     Dosage: 0.025 MG, QD
     Route: 048
  18. METHADONE HCL [Concomitant]
  19. SYNTHROID [Concomitant]
     Dosage: 0.075 MG, UNK
  20. CALCIUM W/VITAMIN D NOS [Concomitant]
  21. AREDIA [Suspect]
     Indication: OSTEOPOROSIS
     Dosage: 90 MG, QMO
     Route: 042
     Dates: start: 19991001, end: 20030801
  22. CLONAZEPAM [Concomitant]
     Dosage: 2 MG, TID PRN
  23. FIORICET [Concomitant]
     Indication: PAIN
     Route: 048
  24. EPIPEN [Concomitant]
     Indication: ARTHROPOD STING
     Dosage: 0.3 MG, PRN
  25. RELAFEN [Concomitant]
  26. CENTRUM [Concomitant]
  27. IMODIUM [Concomitant]
  28. AREDIA [Suspect]
     Indication: BREAST CANCER
  29. PROCRIT                            /00909301/ [Concomitant]
  30. ZOCOR [Concomitant]
     Indication: BLOOD CHOLESTEROL INCREASED
     Dosage: 40 MG, QD

REACTIONS (55)
  - OSTEOMYELITIS [None]
  - NECK PAIN [None]
  - SCIATICA [None]
  - HAEMORRHOIDS [None]
  - NIGHT SWEATS [None]
  - HYPOAESTHESIA [None]
  - CHEST PAIN [None]
  - VOMITING [None]
  - DENTAL FISTULA [None]
  - HAEMATOCHEZIA [None]
  - PAINFUL RESPIRATION [None]
  - BONE DISORDER [None]
  - RECTAL HAEMORRHAGE [None]
  - COLONIC POLYP [None]
  - POLLAKIURIA [None]
  - ANXIETY [None]
  - OROPHARYNGEAL PAIN [None]
  - OROPHARYNGEAL PLAQUE [None]
  - HAEMOGLOBIN DECREASED [None]
  - DERMATITIS ALLERGIC [None]
  - HEADACHE [None]
  - PAIN IN EXTREMITY [None]
  - COUGH [None]
  - INSOMNIA [None]
  - LARYNGITIS [None]
  - OSTEONECROSIS OF JAW [None]
  - SPINAL DISORDER [None]
  - VISUAL IMPAIRMENT [None]
  - SINUS DISORDER [None]
  - RADICULOPATHY [None]
  - MIGRAINE [None]
  - PAIN [None]
  - BONE LOSS [None]
  - MOUTH ULCERATION [None]
  - TOOTH EROSION [None]
  - SPINAL HAEMANGIOMA [None]
  - DENTAL CARIES [None]
  - BONE SCAN ABNORMAL [None]
  - VITAMIN D DEFICIENCY [None]
  - NAUSEA [None]
  - MUSCLE SPASMS [None]
  - X-RAY DENTAL [None]
  - STOMATITIS [None]
  - CALCIUM IONISED INCREASED [None]
  - HAEMATURIA [None]
  - BACK PAIN [None]
  - URINARY TRACT INFECTION [None]
  - EXOSTOSIS [None]
  - DYSPHONIA [None]
  - BLOOD CALCIUM INCREASED [None]
  - PERIODONTITIS [None]
  - NEURITIS [None]
  - DYSPHAGIA [None]
  - DYSPNOEA [None]
  - TEMPERATURE INTOLERANCE [None]
